FAERS Safety Report 11718390 (Version 1)
Quarter: 2015Q4

REPORT INFORMATION
  Report Type: Report from Study
  Country: BE (occurrence: BE)
  Receive Date: 20151110
  Receipt Date: 20151110
  Transmission Date: 20160304
  Serious: Yes (Other)
  Sender: FDA-Public Use
  Company Number: BE-BIOGENIDEC-2015BI147430

PATIENT
  Age: 28 Year
  Sex: Female

DRUGS (10)
  1. AVONEX [Suspect]
     Active Substance: INTERFERON BETA-1A
     Indication: MULTIPLE SCLEROSIS
     Route: 030
     Dates: start: 20150109, end: 20150921
  2. CALMIGEM [Concomitant]
  3. SEDISTRESS [Concomitant]
  4. BEFACT FORTE [Concomitant]
  5. NUROFEN 400 [Concomitant]
  6. ERGY 3 [Concomitant]
  7. VITAMIN D [Concomitant]
     Active Substance: CHOLECALCIFEROL
  8. BIO-D-MULSION [Concomitant]
  9. DAFALGAN [Concomitant]
     Active Substance: ACETAMINOPHEN
  10. VITAMIN D [Concomitant]
     Active Substance: CHOLECALCIFEROL

REACTIONS (4)
  - Rash generalised [Unknown]
  - Drug-induced liver injury [Unknown]
  - Lyme disease [Unknown]
  - Face oedema [Unknown]

NARRATIVE: CASE EVENT DATE: 2015
